FAERS Safety Report 11723170 (Version 1)
Quarter: 2015Q4

REPORT INFORMATION
  Report Type: Spontaneous
  Country: US (occurrence: None)
  Receive Date: 20151110
  Receipt Date: 20151110
  Transmission Date: 20160304
  Serious: Yes (Disabling)
  Sender: FDA-Public Use
  Company Number: None

PATIENT
  Age: 31 Year
  Sex: Male
  Weight: 81.65 kg

DRUGS (5)
  1. KELP [Concomitant]
     Active Substance: KELP
  2. FISH OIL [Concomitant]
     Active Substance: FISH OIL
  3. AMITRIPTYLINE [Concomitant]
     Active Substance: AMITRIPTYLINE
  4. LEVOFLOXACIN 500MG JANSSEN [Suspect]
     Active Substance: LEVOFLOXACIN
     Indication: COSTOCHONDRITIS
     Dosage: 10 PILLS?ONCE DAILY?TAKEN BY MOUTH
     Route: 048
     Dates: end: 20150711
  5. ZINC [Concomitant]
     Active Substance: ZINC\ZINC CHLORIDE

REACTIONS (6)
  - Generalised anxiety disorder [None]
  - Muscle contractions involuntary [None]
  - Pain in extremity [None]
  - Quality of life decreased [None]
  - Neuropathy peripheral [None]
  - Tremor [None]

NARRATIVE: CASE EVENT DATE: 20110701
